FAERS Safety Report 24605792 (Version 4)
Quarter: 2024Q4

REPORT INFORMATION
  Report Type: Spontaneous
  Country: US (occurrence: US)
  Receive Date: 20241111
  Receipt Date: 20241226
  Transmission Date: 20250115
  Serious: Yes (Hospitalization, Other)
  Sender: ORGANON
  Company Number: US-ORGANON-O2411USA000382

PATIENT
  Sex: Female
  Weight: 53.061 kg

DRUGS (3)
  1. NEXPLANON [Suspect]
     Active Substance: ETONOGESTREL
     Dosage: 1 IMPLANT IN RIGHT ARM
     Route: 059
     Dates: start: 20200324, end: 20230323
  2. NEXPLANON [Suspect]
     Active Substance: ETONOGESTREL
     Dosage: 1 IMPLANT IN RIGHT UPPER ARM
     Route: 059
     Dates: start: 20230323, end: 20230328
  3. NEXPLANON [Suspect]
     Active Substance: ETONOGESTREL
     Dosage: 1 IMPLANT IN LEFT ARM
     Route: 059
     Dates: start: 20230328

REACTIONS (7)
  - Implant site infection [Recovered/Resolved]
  - Abscess [Recovered/Resolved]
  - Amenorrhoea [Recovered/Resolved]
  - Vaginal haemorrhage [Not Recovered/Not Resolved]
  - Cough [Unknown]
  - Complication of device removal [Recovered/Resolved]
  - Device placement issue [Not Recovered/Not Resolved]
